FAERS Safety Report 9945431 (Version 1)
Quarter: 2014Q1

REPORT INFORMATION
  Report Type: Report from Study
  Country: US (occurrence: US)
  Receive Date: 20140303
  Receipt Date: 20140303
  Transmission Date: 20141002
  Serious: No
  Sender: FDA-Public Use
  Company Number: US-ABBVIE-13P-163-1053710-00

PATIENT
  Age: 40 Year
  Sex: Female

DRUGS (2)
  1. HUMIRA [Suspect]
     Indication: PSORIASIS
     Route: 058
     Dates: start: 201204, end: 201301
  2. HUMIRA [Suspect]
     Route: 058
     Dates: start: 20130211

REACTIONS (6)
  - Respiratory tract congestion [Recovered/Resolved]
  - Sinusitis [Recovered/Resolved]
  - Pruritus [Recovering/Resolving]
  - Dermatitis contact [Unknown]
  - Psoriasis [Not Recovered/Not Resolved]
  - White blood cell count increased [Not Recovered/Not Resolved]
